FAERS Safety Report 6373783-1 (Version None)
Quarter: 2009Q3

REPORT INFORMATION
  Report Type: 
  Country: None (occurrence: None)
  Receive Date: 20090924
  Receipt Date: 20090528
  Transmission Date: 20100115
  Serious: No
  Sender: FDA-Public Use
  Company Number: US-ASTRAZENECA-2009UW13747

PATIENT
  Age: 57 Year
  Sex: Female
  Weight: 83.9 kg

DRUGS (6)
  1. SEROQUEL [Suspect]
     Indication: SLEEP TALKING
     Route: 048
     Dates: start: 20080101
  2. SEROQUEL [Suspect]
     Indication: LIMB INJURY
     Route: 048
     Dates: start: 20080101
  3. SEROQUEL [Suspect]
     Route: 048
  4. SEROQUEL [Suspect]
     Route: 048
  5. NAMENDA [Concomitant]
  6. ARICEPT [Concomitant]

REACTIONS (2)
  - CONDITION AGGRAVATED [None]
  - DIABETES MELLITUS [None]
